FAERS Safety Report 7620891-0 (Version None)
Quarter: 2011Q3

REPORT INFORMATION
  Report Type: 
  Country: None (occurrence: None)
  Receive Date: 20110719
  Receipt Date: 20110712
  Transmission Date: 20111222
  Serious: Yes (Congenital Anomaly, Other)
  Sender: FDA-Public Use
  Company Number: US-PFIZER INC-2011159887

PATIENT
  Sex: Female

DRUGS (1)
  1. ZOLOFT [Suspect]
     Dosage: 100 MG ONE AND HALF TABLET ORALLY ONCE EVERY DAY
     Route: 064
     Dates: start: 20030101

REACTIONS (4)
  - SINUS BRADYCARDIA [None]
  - ANOMALOUS PULMONARY VENOUS CONNECTION [None]
  - MATERNAL EXPOSURE DURING PREGNANCY [None]
  - COR TRIATRIATUM [None]
